FAERS Safety Report 26107949 (Version 1)
Quarter: 2025Q4

REPORT INFORMATION
  Report Type: Spontaneous
  Country: EU (occurrence: EU)
  Receive Date: 20251201
  Receipt Date: 20251201
  Transmission Date: 20260117
  Serious: Yes (Other)
  Sender: MYLAN
  Company Number: None

PATIENT
  Age: 87 Year
  Sex: Female
  Weight: 48 kg

DRUGS (5)
  1. ZOLEDRONIC ACID [Suspect]
     Active Substance: ZOLEDRONIC ACID
     Indication: Osteoporosis
     Dosage: 1 DOSAGE FORM
     Dates: start: 20250718, end: 20250718
  2. Calciforte [Concomitant]
     Indication: Mineral supplementation
     Dosage: 1 DOSAGE FORM, QD
     Dates: start: 202507
  3. Calciforte [Concomitant]
     Indication: Vitamin supplementation
  4. CHOLECALCIFEROL [Concomitant]
     Active Substance: CHOLECALCIFEROL
     Indication: Vitamin supplementation
     Dosage: 1 DOSAGE FORM, MONTHLY
     Dates: start: 202507
  5. ACETAMINOPHEN [Concomitant]
     Active Substance: ACETAMINOPHEN
     Indication: Pain
     Dosage: 1000 MILLIGRAM, Q8H (IF NEEDED)
     Dates: start: 202507

REACTIONS (7)
  - Incontinence [Recovered/Resolved]
  - Condition aggravated [Recovered/Resolved]
  - Deafness unilateral [Recovered/Resolved]
  - Visual impairment [Not Recovered/Not Resolved]
  - Influenza like illness [Recovered/Resolved]
  - Confusional state [Recovered/Resolved]
  - Arthralgia [Recovered/Resolved]

NARRATIVE: CASE EVENT DATE: 20250718
